FAERS Safety Report 8870832 (Version 1)
Quarter: 2012Q4

REPORT INFORMATION
  Report Type: 
  Country: US (occurrence: US)
  Receive Date: 20121026
  Receipt Date: 20121026
  Transmission Date: 20130627
  Serious: No
  Sender: FDA-Public Use
  Company Number: US-AMGEN-USASP2012043164

PATIENT
  Age: 48 Year
  Sex: Female
  Weight: 86.62 kg

DRUGS (7)
  1. ENBREL [Suspect]
     Indication: PRODUCT USED FOR UNKNOWN INDICATION
     Dosage: 50 mg, qwk
     Route: 058
  2. LACTAID [Concomitant]
     Dosage: 3000 UNK, UNK
  3. LISINOPRIL [Concomitant]
     Dosage: 2.5 mg, UNK
  4. CYCLOBENZAPRINE [Concomitant]
     Dosage: 10 mg, UNK
  5. OMEPRAZOLE [Concomitant]
     Dosage: 10 mg, UNK
  6. CALCIUM CITRATE MALATE WITH D3 [Concomitant]
     Dosage: UNK
  7. TYLENOL /00020001/ [Concomitant]
     Dosage: 325 mg, UNK

REACTIONS (3)
  - Vision blurred [Unknown]
  - Axillary mass [Recovered/Resolved]
  - Tenderness [Recovered/Resolved]
